FAERS Safety Report 16582211 (Version 1)
Quarter: 2019Q3

REPORT INFORMATION
  Report Type: Spontaneous
  Country: US (occurrence: US)
  Receive Date: 20190717
  Receipt Date: 20190717
  Transmission Date: 20191004
  Serious: No
  Sender: FDA-Public Use
  Company Number: US-GALDERMA-US19000728

PATIENT
  Age: 15 Year
  Sex: Male

DRUGS (10)
  1. PROACTIV MD DEEP CLEANSING FACE WASH [Concomitant]
     Active Substance: COSMETICS
     Route: 061
     Dates: start: 20181128
  2. ELDERBERRY [Concomitant]
     Active Substance: HERBALS
  3. PROACTIV EYE BRIGHTENING SERUM [Concomitant]
     Active Substance: COSMETICS
     Route: 061
     Dates: start: 20181128
  4. PROACTIV CLEANSING BODY BAR [Concomitant]
     Active Substance: SALICYLIC ACID
     Route: 061
     Dates: start: 20181128
  5. PROACTIV MOISTURE REPAIR [Concomitant]
     Active Substance: COSMETICS
     Route: 061
     Dates: start: 20181128
  6. FISH OIL [Concomitant]
     Active Substance: FISH OIL
  7. PROBIOTIC [Concomitant]
     Active Substance: PROBIOTICS NOS
  8. PROACTIV MD DAILY OIL CONTROL SPF 30 [Suspect]
     Active Substance: AVOBENZONE\OCTISALATE\OCTOCRYLENE
     Indication: PRODUCT USED FOR UNKNOWN INDICATION
     Route: 061
     Dates: start: 20181128
  9. MULTIVITAMINS [Concomitant]
     Active Substance: VITAMINS
  10. PROACTIV MD ADAPALENE ACNE TREATMENT [Suspect]
     Active Substance: ADAPALENE
     Indication: PRODUCT USED FOR UNKNOWN INDICATION
     Dosage: 0.1%
     Route: 061
     Dates: start: 20181128

REACTIONS (1)
  - Dry skin [Not Recovered/Not Resolved]

NARRATIVE: CASE EVENT DATE: 201812
